FAERS Safety Report 21181788 (Version 2)
Quarter: 2022Q3

REPORT INFORMATION
  Report Type: Spontaneous
  Country: DE (occurrence: None)
  Receive Date: 20220806
  Receipt Date: 20220909
  Transmission Date: 20221026
  Serious: Yes (Other)
  Sender: FDA-Public Use
  Company Number: DE-Merck Healthcare KGaA-9340232

PATIENT
  Sex: Female

DRUGS (15)
  1. LEVOTHYROXINE [Interacting]
     Active Substance: LEVOTHYROXINE
     Indication: Post procedural hypothyroidism
     Dosage: 100 (UNSPECIFIED UNIT) AT 7:00 AND 125 UNSPECIFIED UNITS ON MON, TUE, THU, FRI, SAT
     Dates: start: 2007
  2. GLUCOPHAGE [Suspect]
     Active Substance: METFORMIN HYDROCHLORIDE
     Indication: Type 2 diabetes mellitus
     Dates: end: 202206
  3. ALLOPURINOL [Interacting]
     Active Substance: ALLOPURINOL
     Indication: Blood uric acid increased
     Dates: start: 2005
  4. BACLOFEN [Interacting]
     Active Substance: BACLOFEN
     Indication: Muscle spasticity
     Dosage: 10 MG AT 1:00, 25 MG AT 8:00, 25 MG AT 14.00 AND 15 MG AT 20.00 (ONLY IF NEEDED)
  5. VALSARTAN [Interacting]
     Active Substance: VALSARTAN
     Indication: Purging
     Dosage: 160 MG AT 8:00 AND 80 MG AT 22:00
  6. PANTOPRAZOLE [Interacting]
     Active Substance: PANTOPRAZOLE
     Indication: Neuralgia
  7. TROSPIUM CHLORIDE [Interacting]
     Active Substance: TROSPIUM CHLORIDE
     Indication: Bladder catheter replacement
  8. GABAPENTIN [Interacting]
     Active Substance: GABAPENTIN
     Indication: Paraesthesia
     Dosage: AT 8:00, AT 14.00 AND AT 22.00
  9. TAPENTADOL [Interacting]
     Active Substance: TAPENTADOL
     Indication: Product used for unknown indication
     Dosage: AT 8:00, AT 14.00 AND AT 22.00
  10. DOXEPIN [Interacting]
     Active Substance: DOXEPIN
     Indication: Analgesic therapy
  11. DOXEPIN [Interacting]
     Active Substance: DOXEPIN
  12. POTASSIUM TARTRATE\SODIUM BICARBONATE [Interacting]
     Active Substance: POTASSIUM TARTRATE\SODIUM BICARBONATE
     Indication: Drainage
     Dosage: 2 (UNSPECIFIED UNIT) AT 8:00 EVERY 2ND DAY BEFORE SHOWERING FOR DRAINAGE
  13. BISACODYL [Interacting]
     Active Substance: BISACODYL
     Indication: Drainage
     Dosage: 10 DROPS IN THE EVENING / NIGHT BEFORE THE DAY OF DRAINAGE (8-10 HOURS BEFORE THE SUPPOSITORIES)
  14. HERBALS [Interacting]
     Active Substance: HERBALS
     Indication: Product used for unknown indication
     Dosage: AT 8:00, 14.00, 20.00 AND 22.00
  15. NALOXONE HYDROCHLORIDE\TILIDINE HYDROCHLORIDE [Concomitant]
     Active Substance: NALOXONE HYDROCHLORIDE\TILIDINE HYDROCHLORIDE
     Indication: Product used for unknown indication

REACTIONS (11)
  - Diabetes mellitus [Not Recovered/Not Resolved]
  - Diabetes mellitus inadequate control [Not Recovered/Not Resolved]
  - Drug interaction [Unknown]
  - Scar pain [Not Recovered/Not Resolved]
  - Neuralgia [Not Recovered/Not Resolved]
  - Pain in extremity [Not Recovered/Not Resolved]
  - Peripheral swelling [Not Recovered/Not Resolved]
  - Rash macular [Not Recovered/Not Resolved]
  - Product dispensing issue [Unknown]
  - Product dose omission issue [Unknown]
  - Off label use [Unknown]

NARRATIVE: CASE EVENT DATE: 20210101
